FAERS Safety Report 10029093 (Version 2)
Quarter: 2014Q2

REPORT INFORMATION
  Report Type: Spontaneous
  Country: US (occurrence: US)
  Receive Date: 20140321
  Receipt Date: 20140418
  Transmission Date: 20141212
  Serious: Yes (Other)
  Sender: FDA-Public Use
  Company Number: CHPA2014US004102

PATIENT
  Age: 86 Year
  Sex: Male

DRUGS (3)
  1. GAS-X [Suspect]
     Indication: FLATULENCE
     Dosage: UNK, 2 THIN STRIPS
     Route: 048
     Dates: start: 20140317
  2. COLACE [Concomitant]
  3. TUMS [Concomitant]

REACTIONS (2)
  - Constipation [Not Recovered/Not Resolved]
  - Drug ineffective [Not Recovered/Not Resolved]
